FAERS Safety Report 18162872 (Version 1)
Quarter: 2020Q3

REPORT INFORMATION
  Report Type: Spontaneous
  Country: US (occurrence: US)
  Receive Date: 20200818
  Receipt Date: 20200818
  Transmission Date: 20201103
  Serious: No
  Sender: FDA-Public Use
  Company Number: US-PERRIGO-20US006877

PATIENT
  Age: 10 Year
  Sex: Male
  Weight: 23.58 kg

DRUGS (3)
  1. CLINDAMYCIN PALMITATE HYDROCHLORIDE. [Suspect]
     Active Substance: CLINDAMYCIN PALMITATE HYDROCHLORIDE
     Indication: PROPHYLAXIS
     Dosage: 247.5 MG, SINGLE
     Route: 048
     Dates: start: 20200502, end: 20200502
  2. CLINDAMYCIN PALMITATE HYDROCHLORIDE. [Suspect]
     Active Substance: CLINDAMYCIN PALMITATE HYDROCHLORIDE
     Dosage: 247.5 MG, BID
     Route: 048
     Dates: start: 20200503, end: 20200503
  3. SULFATRIM [Concomitant]
     Active Substance: SULFAMETHOXAZOLE\TRIMETHOPRIM
     Indication: PROPHYLAXIS
     Dosage: UNK
     Route: 065
     Dates: start: 20200502

REACTIONS (1)
  - Vomiting [Recovered/Resolved]

NARRATIVE: CASE EVENT DATE: 20200502
